FAERS Safety Report 9967139 (Version 1)
Quarter: 2014Q1

REPORT INFORMATION
  Report Type: Report from Study
  Country: US (occurrence: US)
  Receive Date: 20140305
  Receipt Date: 20140305
  Transmission Date: 20141002
  Serious: No
  Sender: FDA-Public Use
  Company Number: US-ABBVIE-13P-163-1138331-00

PATIENT
  Age: 27 Year
  Sex: 0

DRUGS (2)
  1. HUMIRA [Suspect]
     Indication: CROHN^S DISEASE
     Dates: start: 201007, end: 201111
  2. HUMIRA [Suspect]
     Dosage: LOADING DOSE
     Dates: start: 20130821

REACTIONS (8)
  - Skin ulcer [Unknown]
  - Abdominal pain upper [Recovered/Resolved]
  - Mouth ulceration [Unknown]
  - Fatigue [Recovering/Resolving]
  - Weight decreased [Unknown]
  - Crohn^s disease [Unknown]
  - Skin burning sensation [Unknown]
  - Paraesthesia [Unknown]
